FAERS Safety Report 8969405 (Version 3)
Quarter: 2013Q1

REPORT INFORMATION
  Report Type: Spontaneous
  Country: CA (occurrence: CA)
  Receive Date: 20121217
  Receipt Date: 20130130
  Transmission Date: 20140127
  Serious: Yes (Other)
  Sender: FDA-Public Use
  Company Number: PHHY2012CA115547

PATIENT
  Sex: Female

DRUGS (1)
  1. ALENDRONATE [Suspect]
     Dosage: 1 DF, UNK

REACTIONS (3)
  - Urinary tract infection [Recovered/Resolved]
  - Blood urine present [Recovered/Resolved]
  - Chromaturia [Recovered/Resolved]
